FAERS Safety Report 10473978 (Version 1)
Quarter: 2014Q3

REPORT INFORMATION
  Report Type: Report from Study
  Country: BR (occurrence: BR)
  Receive Date: 20140924
  Receipt Date: 20140924
  Transmission Date: 20150326
  Serious: Yes (Death, Hospitalization, Other)
  Sender: FDA-Public Use
  Company Number: PHHY2014BR124808

PATIENT
  Sex: Female
  Weight: 54 kg

DRUGS (5)
  1. EXELON PATCH [Suspect]
     Active Substance: RIVASTIGMINE
     Indication: DEMENTIA ALZHEIMER^S TYPE
     Dosage: 4.6 MG (PATCH 5CM2), DAILY
     Route: 062
     Dates: start: 2014
  2. CARVEDILOL. [Concomitant]
     Active Substance: CARVEDILOL
     Indication: CARDIAC DISORDER
     Dosage: 1 DF (1 TABLET), BID (IN THE MORNING AND AT NIGHT)
  3. CARVEDILOL. [Concomitant]
     Active Substance: CARVEDILOL
     Dosage: 4 DF (4 TABLETS), DAILY
  4. AAS [Concomitant]
     Active Substance: ASPIRIN
     Indication: COAGULOPATHY
     Dosage: 1 DF (1 TABLET), DAILY
  5. ARAVA [Concomitant]
     Active Substance: LEFLUNOMIDE
     Indication: RHEUMATOID ARTHRITIS
     Dosage: 1 DF (1 TABLET), DAILY

REACTIONS (2)
  - Asthma [Unknown]
  - Respiratory failure [Fatal]
